FAERS Safety Report 7224626-5 (Version None)
Quarter: 2011Q1

REPORT INFORMATION
  Report Type: 
  Country: None (occurrence: None)
  Receive Date: 20110113
  Receipt Date: 20110107
  Transmission Date: 20110831
  Serious: Yes (Other)
  Sender: FDA-Public Use
  Company Number: BR-PFIZER INC-2011005541

PATIENT
  Age: 41 Year
  Sex: Female
  Weight: 73 kg

DRUGS (4)
  1. OMEPRAZOLE [Concomitant]
     Indication: ABDOMINAL DISCOMFORT
     Dosage: UNK
  2. SOLU-MEDROL [Suspect]
     Indication: MULTIPLE SCLEROSIS
     Dosage: UNK
     Dates: start: 20080101
  3. AZATHIOPRINE [Concomitant]
     Indication: MULTIPLE SCLEROSIS
     Dosage: 3 TABLETS DAILY
     Dates: start: 20090701
  4. RIVOTRIL [Concomitant]
     Indication: INSOMNIA
     Dosage: 2 MG, 2X/DAY
     Dates: start: 20090701

REACTIONS (3)
  - VISUAL IMPAIRMENT [None]
  - MULTIPLE SCLEROSIS RELAPSE [None]
  - MULTIPLE SCLEROSIS [None]
